FAERS Safety Report 10607316 (Version 5)
Quarter: 2015Q2

REPORT INFORMATION
  Report Type: Spontaneous
  Country: US (occurrence: US)
  Receive Date: 20141125
  Receipt Date: 20150623
  Transmission Date: 20150821
  Serious: Yes (Hospitalization, Disabling, Other)
  Sender: FDA-Public Use
  Company Number: US-ASTELLAS-2014US017945

PATIENT
  Age: 85 Year
  Sex: Male

DRUGS (2)
  1. XTANDI [Suspect]
     Active Substance: ENZALUTAMIDE
     Indication: PROSTATE CANCER
     Route: 048
  2. XARELTO [Concomitant]
     Active Substance: RIVAROXABAN
     Indication: PRODUCT USED FOR UNKNOWN INDICATION
     Route: 048

REACTIONS (13)
  - Vascular graft [Unknown]
  - Fall [Unknown]
  - Pain [Unknown]
  - Weight decreased [Unknown]
  - Hospitalisation [Unknown]
  - Blood urine present [Unknown]
  - Asthenia [Unknown]
  - Fall [Unknown]
  - Gout [Unknown]
  - Back disorder [Unknown]
  - Pelvic fracture [Unknown]
  - Wrist fracture [Not Recovered/Not Resolved]
  - Rib fracture [Unknown]

NARRATIVE: CASE EVENT DATE: 20150106
